FAERS Safety Report 6822590-1 (Version None)
Quarter: 2010Q3

REPORT INFORMATION
  Report Type: 
  Country: None (occurrence: None)
  Receive Date: 20100708
  Receipt Date: 20100628
  Transmission Date: 20110219
  Serious: Yes (Hospitalization, Other)
  Sender: FDA-Public Use
  Company Number: FR-ELI_LILLY_AND_COMPANY-FR200912000788

PATIENT
  Sex: Female

DRUGS (3)
  1. ZYPREXA [Suspect]
     Dosage: UNK, UNK
     Route: 048
     Dates: start: 20090827
  2. ZYPREXA [Suspect]
     Dosage: UNK, UNK
     Route: 048
     Dates: start: 20090920, end: 20090928
  3. RISPERDAL [Concomitant]
     Route: 048
     Dates: start: 20090719, end: 20090826

REACTIONS (3)
  - BILIARY CIRRHOSIS PRIMARY [None]
  - HEPATIC ENZYME INCREASED [None]
  - HYPERGAMMAGLOBULINAEMIA [None]
